FAERS Safety Report 14941152 (Version 3)
Quarter: 2018Q3

REPORT INFORMATION
  Report Type: Spontaneous
  Country: US (occurrence: US)
  Receive Date: 20180525
  Receipt Date: 20180830
  Transmission Date: 20181010
  Serious: No
  Sender: FDA-Public Use
  Company Number: US-BIOGEN-2018BI00581389

PATIENT
  Sex: Male

DRUGS (2)
  1. TYSABRI [Suspect]
     Active Substance: NATALIZUMAB
     Route: 042
     Dates: start: 2005, end: 2016
  2. TYSABRI [Suspect]
     Active Substance: NATALIZUMAB
     Indication: MULTIPLE SCLEROSIS
     Dosage: INFUSED OVER 1 HOUR
     Route: 042
     Dates: start: 2007

REACTIONS (6)
  - Gait inability [Not Recovered/Not Resolved]
  - Spinal pain [Not Recovered/Not Resolved]
  - Asthenia [Unknown]
  - Thrombosis [Not Recovered/Not Resolved]
  - General physical health deterioration [Unknown]
  - Lower limb fracture [Not Recovered/Not Resolved]
